FAERS Safety Report 15250353 (Version 2)
Quarter: 2018Q3

REPORT INFORMATION
  Report Type: Spontaneous
  Country: IR (occurrence: IR)
  Receive Date: 20180807
  Receipt Date: 20180820
  Transmission Date: 20181010
  Serious: Yes (Death, Other)
  Sender: FDA-Public Use
  Company Number: IR-SA-2018SA210513

PATIENT
  Sex: Male

DRUGS (3)
  1. ALGLUCOSIDASE ALFA [Suspect]
     Active Substance: ALGLUCOSIDASE ALFA
     Route: 041
  2. CAPTOPRIL. [Concomitant]
     Active Substance: CAPTOPRIL
  3. CREON (PANCRELIPASE) [Concomitant]

REACTIONS (5)
  - Muscle disorder [Unknown]
  - Liver disorder [Unknown]
  - Death [Fatal]
  - Cystic fibrosis [Unknown]
  - Hypothyroidism [Unknown]
